FAERS Safety Report 10464158 (Version 2)
Quarter: 2014Q3

REPORT INFORMATION
  Report Type: Spontaneous
  Country: US (occurrence: US)
  Receive Date: 20140919
  Receipt Date: 20140924
  Transmission Date: 20150326
  Serious: Yes (Death, Life-Threatening, Hospitalization, Other)
  Sender: FDA-Public Use
  Company Number: US-009507513-1409USA008280

PATIENT
  Sex: Male
  Weight: 174.6 kg

DRUGS (1)
  1. JANUVIA [Suspect]
     Active Substance: SITAGLIPTIN PHOSPHATE
     Indication: TYPE 2 DIABETES MELLITUS
     Dosage: 100 MG, QD
     Route: 048
     Dates: start: 20080218, end: 20100219

REACTIONS (33)
  - Fatigue [Unknown]
  - Nephropathy [Unknown]
  - Malaise [Unknown]
  - Chills [Unknown]
  - Hypothyroidism [Unknown]
  - Sleep apnoea syndrome [Unknown]
  - Hyperpituitarism [Unknown]
  - Pancreatic carcinoma metastatic [Unknown]
  - Cardiac failure congestive [Unknown]
  - Atrial fibrillation [Unknown]
  - Narcolepsy [Unknown]
  - Metastases to liver [Unknown]
  - Phlebitis [Unknown]
  - Haematuria [Recovered/Resolved]
  - Adverse event [Unknown]
  - Peripheral venous disease [Unknown]
  - Hypogonadism [Unknown]
  - Myalgia [Unknown]
  - Catheter placement [Unknown]
  - Asthenia [Unknown]
  - Lymphangitis [Unknown]
  - Pyrexia [Unknown]
  - Osteoarthritis [Unknown]
  - Nephrolithiasis [Unknown]
  - Constipation [Not Recovered/Not Resolved]
  - Death [Fatal]
  - Metastases to lung [Unknown]
  - Neuropathy peripheral [Unknown]
  - Insulin-requiring type 2 diabetes mellitus [Unknown]
  - Cough [Unknown]
  - Extrasystoles [Unknown]
  - Vitamin B12 deficiency [Unknown]
  - Polycythaemia [Unknown]

NARRATIVE: CASE EVENT DATE: 2008
